FAERS Safety Report 4815994-X (Version None)
Quarter: 2005Q4

REPORT INFORMATION
  Report Type: 
  Country: None (occurrence: None)
  Receive Date: 20051026
  Receipt Date: 20050608
  Transmission Date: 20060501
  Serious: Yes (Other)
  Sender: FDA-Public Use
  Company Number: HECT-10128

PATIENT
  Age: 83 Year
  Sex: Female

DRUGS (1)
  1. HECTOROL [Suspect]
     Indication: HYPERPARATHYROIDISM SECONDARY
     Dosage: 2 MCG 3X/W IV
     Route: 042
     Dates: start: 20050429, end: 20050506

REACTIONS (4)
  - HAEMODIALYSIS [None]
  - INFECTION [None]
  - INTESTINAL OBSTRUCTION [None]
  - PRURITUS [None]
